FAERS Safety Report 7723865-4 (Version None)
Quarter: 2011Q3

REPORT INFORMATION
  Report Type: 
  Country: None (occurrence: None)
  Receive Date: 20110901
  Receipt Date: 20110822
  Transmission Date: 20111222
  Serious: Yes (Other)
  Sender: FDA-Public Use
  Company Number: JP-PFIZER INC-2011189744

PATIENT
  Age: 58 Year
  Sex: Female

DRUGS (4)
  1. PACLITAXEL [Suspect]
     Indication: BREAST CANCER
     Dosage: 150 MG/M2, ONCE EVERY 3 WEEKS
  2. DOXORUBICIN HYDROCHLORIDE [Concomitant]
     Indication: BREAST CANCER
     Dosage: 50 MG/M2, ONCE EVERY 3 WEEKS
  3. PACLITAXEL [Suspect]
     Dosage: 80 MG/M2, ONCE WEEKLY
  4. EXEMESTANE [Concomitant]
     Indication: BREAST CANCER
     Dosage: 25 MG, 1X/DAY

REACTIONS (1)
  - NEUROPATHY PERIPHERAL [None]
